FAERS Safety Report 8578648-2 (Version None)
Quarter: 2012Q3

REPORT INFORMATION
  Report Type: 
  Country: None (occurrence: None)
  Receive Date: 20120808
  Receipt Date: 20120801
  Transmission Date: 20120928
  Serious: Yes (Hospitalization, Other)
  Sender: FDA-Public Use
  Company Number: US-ABBOTT-12P-163-0953236-00

PATIENT
  Sex: Male
  Weight: 63.56 kg

DRUGS (13)
  1. HUMIRA [Suspect]
     Indication: PSORIASIS
     Dates: start: 20110323, end: 20111225
  2. LISINOPRIL [Concomitant]
     Indication: HYPERTENSION
  3. PLAVIX [Concomitant]
     Indication: THROMBOSIS PROPHYLAXIS
     Dates: start: 20120101
  4. LORAZEPAM [Concomitant]
     Indication: ANXIETY
  5. VIMPAT [Concomitant]
     Indication: CONVULSION
     Dates: start: 20120101
  6. NAMENDA [Concomitant]
     Indication: CONFUSIONAL STATE
     Dates: start: 20120101
  7. BYSTOLIC [Concomitant]
     Indication: HYPERTENSION
  8. PRILOSEC [Concomitant]
     Indication: GASTROOESOPHAGEAL REFLUX DISEASE
  9. HUMIRA [Suspect]
     Dates: start: 20110101, end: 20120101
  10. HUMIRA [Suspect]
     Dates: start: 20120601
  11. VITAMIN D [Concomitant]
     Indication: VITAMIN SUPPLEMENTATION
  12. SIMVASTATIN [Concomitant]
     Indication: BLOOD CHOLESTEROL INCREASED
  13. AMLODIPINE [Concomitant]
     Indication: HYPERTENSION

REACTIONS (6)
  - RENAL FAILURE CHRONIC [None]
  - HYPERTENSION [None]
  - PSORIASIS [None]
  - STENT PLACEMENT [None]
  - CONVULSION [None]
  - CEREBROVASCULAR ACCIDENT [None]
